FAERS Safety Report 9796875 (Version 2)
Quarter: 2014Q1

REPORT INFORMATION
  Report Type: Spontaneous
  Country: FR (occurrence: FR)
  Receive Date: 20140103
  Receipt Date: 20140115
  Transmission Date: 20141002
  Serious: Yes (Hospitalization, Other)
  Sender: FDA-Public Use
  Company Number: PHHY2013FR154113

PATIENT
  Age: 67 Year
  Sex: Male

DRUGS (14)
  1. VOLTARENE [Suspect]
     Indication: GOUT
     Dosage: 50 MG, BID
     Route: 048
     Dates: start: 20130601, end: 20130604
  2. FUROSEMIDE [Suspect]
     Indication: HYPERTENSION
     Dosage: UNK UKN, UNK
     Route: 048
     Dates: end: 201306
  3. FUROSEMIDE [Suspect]
     Dosage: UNK
     Route: 048
  4. CANDESARTAN CILEXETIL [Suspect]
     Indication: HYPERTENSION
     Dosage: UNK UKN, UNK
     Route: 048
     Dates: end: 201306
  5. CANDESARTAN CILEXETIL [Suspect]
     Dosage: UNK UKN, UNK
     Route: 048
  6. COLCHIMAX [Suspect]
     Indication: GOUT
     Dosage: 2 DF, QD
     Dates: start: 20130601, end: 20130604
  7. NEBIVOLOL [Concomitant]
     Dosage: UNK UKN, UNK
  8. XARELTO [Concomitant]
     Dosage: UNK UKN, UNK
  9. ADENURIC [Concomitant]
     Dosage: UNK UKN, UNK
  10. NOVOMIX [Concomitant]
     Dosage: UNK UKN, UNK
  11. METFORMIN [Concomitant]
     Dosage: UNK UKN, UNK
  12. DIFFU K [Concomitant]
     Dosage: UNK UKN, UNK
  13. CRESTOR [Concomitant]
     Dosage: UNK UKN, UNK
  14. INEXIUM//ESOMEPRAZOLE MAGNESIUM [Concomitant]
     Dosage: UNK UKN, UNK

REACTIONS (6)
  - Renal failure acute [Recovered/Resolved]
  - Asthenia [Recovered/Resolved]
  - Malaise [Recovered/Resolved]
  - Diarrhoea [Recovered/Resolved]
  - Melaena [Recovered/Resolved]
  - Chest pain [Recovered/Resolved]
